FAERS Safety Report 8345836-X (Version None)
Quarter: 2012Q2

REPORT INFORMATION
  Report Type: 
  Country: None (occurrence: None)
  Receive Date: 20120509
  Receipt Date: 20120501
  Transmission Date: 20120825
  Serious: Yes (Life-Threatening, Hospitalization, Other)
  Sender: FDA-Public Use
  Company Number: NL-BIOGENIDEC-2012BI015370

PATIENT
  Age: 65 Year
  Sex: Female

DRUGS (1)
  1. TYSABRI [Suspect]
     Indication: RELAPSING-REMITTING MULTIPLE SCLEROSIS
     Route: 042
     Dates: start: 20070702, end: 20120424

REACTIONS (8)
  - PROGESTERONE RECEPTOR ASSAY POSITIVE [None]
  - GAIT DISTURBANCE [None]
  - OESTROGEN RECEPTOR ASSAY POSITIVE [None]
  - BACK PAIN [None]
  - BREAST CANCER METASTATIC [None]
  - VISUAL EVOKED POTENTIALS ABNORMAL [None]
  - OPTIC NEURITIS [None]
  - POSTURE ABNORMAL [None]
